FAERS Safety Report 8885597 (Version 1)
Quarter: 2012Q4

REPORT INFORMATION
  Report Type: 
  Country: US (occurrence: US)
  Receive Date: 20121101
  Receipt Date: 20121101
  Transmission Date: 20130627
  Serious: No
  Sender: FDA-Public Use
  Company Number: US-PFIZER INC-2012268394

PATIENT
  Sex: Female

DRUGS (3)
  1. LYRICA [Suspect]
     Indication: VERTIGO
     Dosage: 50 mg (two capsules of 25mg), 1x/day
     Route: 048
     Dates: start: 201210
  2. LYRICA [Suspect]
     Indication: DIZZINESS
  3. LYRICA [Suspect]
     Indication: DEAFNESS RIGHT EAR

REACTIONS (2)
  - Off label use [Unknown]
  - Dizziness [Not Recovered/Not Resolved]
